FAERS Safety Report 5409497-1 (Version None)
Quarter: 2007Q3

REPORT INFORMATION
  Report Type: 
  Country: None (occurrence: None)
  Receive Date: 20070809
  Receipt Date: 20070730
  Transmission Date: 20080115
  Serious: Yes (Hospitalization)
  Sender: FDA-Public Use
  Company Number: NL-AMGEN-UK232195

PATIENT
  Sex: Female

DRUGS (5)
  1. NEULASTA [Suspect]
     Indication: CHEMOTHERAPY
     Dates: start: 20070612
  2. TAXOTERE [Suspect]
     Dates: start: 20070611, end: 20070611
  3. DOXORUBICIN HYDROCHLORIDE [Suspect]
     Dates: start: 20070611, end: 20070611
  4. CYCLOPHOSPHAMIDE [Suspect]
     Dates: start: 20070611, end: 20070611
  5. CORTICOSTEROIDS [Concomitant]
     Route: 065

REACTIONS (3)
  - DYSPNOEA [None]
  - HYPERSENSITIVITY [None]
  - LOCAL SWELLING [None]
